FAERS Safety Report 10450281 (Version 2)
Quarter: 2014Q4

REPORT INFORMATION
  Report Type: Spontaneous
  Country: PT (occurrence: PT)
  Receive Date: 20140912
  Receipt Date: 20141121
  Transmission Date: 20150528
  Serious: Yes (Other)
  Sender: FDA-Public Use
  Company Number: PT-GLAXOSMITHKLINE-B1032109A

PATIENT
  Sex: Female

DRUGS (2)
  1. NIQUITIN [Suspect]
     Active Substance: NICOTINE
     Indication: TOBACCO ABUSE
  2. NIQUITIN [Suspect]
     Active Substance: NICOTINE
     Indication: NICOTINE DEPENDENCE
     Route: 062
     Dates: start: 20140906, end: 20140906

REACTIONS (6)
  - Dysphagia [Recovered/Resolved]
  - Erythema [Recovered/Resolved]
  - Laryngeal oedema [Recovered/Resolved]
  - Application site pruritus [Recovered/Resolved]
  - Product quality issue [Unknown]
  - Skin warm [Recovered/Resolved]

NARRATIVE: CASE EVENT DATE: 20140906
